FAERS Safety Report 7582997-4 (Version None)
Quarter: 2011Q2

REPORT INFORMATION
  Report Type: 
  Country: None (occurrence: None)
  Receive Date: 20110527
  Receipt Date: 20101004
  Transmission Date: 20111010
  Serious: Yes (Hospitalization, Other)
  Sender: FDA-Public Use
  Company Number: US201005000642

PATIENT
  Sex: Male
  Weight: 102 kg

DRUGS (6)
  1. EXENATIDE UNK STRENGTH PEN, DISPOSABLE DEVICE (EXENATIDE PEN (UNKNOWN [Concomitant]
  2. ANTIBIOTICS [Concomitant]
  3. BYETTA [Suspect]
     Dates: start: 20050101, end: 20090401
  4. TYLENOL /00020001/ (PARACETAMOL) [Concomitant]
  5. DRUG USED IN DIABETES [Concomitant]
  6. DIURETICS [Concomitant]

REACTIONS (2)
  - RENAL FAILURE [None]
  - PANCREATITIS [None]
